FAERS Safety Report 17693450 (Version 2)
Quarter: 2020Q2

REPORT INFORMATION
  Report Type: Spontaneous
  Country: JP (occurrence: JP)
  Receive Date: 20200422
  Receipt Date: 20200608
  Transmission Date: 20200714
  Serious: Yes (Other)
  Sender: FDA-Public Use
  Company Number: JP-ROCHE-2588732

PATIENT
  Age: 18 Year
  Sex: Female

DRUGS (18)
  1. MEDROL [Suspect]
     Active Substance: METHYLPREDNISOLONE
     Route: 048
     Dates: start: 20200415, end: 20200416
  2. PREDONINE [Suspect]
     Active Substance: PREDNISOLONE
     Indication: ANAPHYLACTIC REACTION
     Route: 048
     Dates: start: 20200410, end: 20200413
  3. ALLERMIST [Concomitant]
     Active Substance: FLUTICASONE FUROATE
     Indication: RHINITIS ALLERGIC
     Dosage: UNK, BID
     Route: 045
  4. MONTELUKAST SODIUM. [Concomitant]
     Active Substance: MONTELUKAST SODIUM
     Indication: RHINITIS ALLERGIC
     Dosage: 10 MG, QD
     Route: 048
  5. XOLAIR [Suspect]
     Active Substance: OMALIZUMAB
     Route: 058
     Dates: start: 20200408
  6. CELESTAMINE [Suspect]
     Active Substance: BETAMETHASONE\DEXCHLORPHENIRAMINE MALEATE
     Indication: FOOD ALLERGY
     Route: 065
  7. HYDROCORTISONE. [Suspect]
     Active Substance: HYDROCORTISONE
     Indication: PRODUCT USED FOR UNKNOWN INDICATION
     Route: 042
  8. XOLAIR [Suspect]
     Active Substance: OMALIZUMAB
     Indication: ASTHMA
     Route: 058
     Dates: start: 20190826, end: 202004
  9. XOLAIR [Suspect]
     Active Substance: OMALIZUMAB
     Route: 058
  10. FAMOTIDINE. [Concomitant]
     Active Substance: FAMOTIDINE
     Indication: HYPERSENSITIVITY
     Dosage: 20 MG, BID
     Route: 048
  11. RELVAR [Concomitant]
     Active Substance: FLUTICASONE FUROATE\VILANTEROL TRIFENATATE
     Indication: ASTHMA
     Dosage: 200 UG, QD
     Route: 039
  12. XOLAIR [Suspect]
     Active Substance: OMALIZUMAB
     Route: 058
     Dates: start: 20191126
  13. MEDROL [Suspect]
     Active Substance: METHYLPREDNISOLONE
     Route: 048
     Dates: start: 20200417
  14. PREDONINE [Suspect]
     Active Substance: PREDNISOLONE
     Route: 048
     Dates: start: 20200504
  15. DELLEGRA [Concomitant]
     Active Substance: FEXOFENADINE HYDROCHLORIDE\PSEUDOEPHEDRINE HYDROCHLORIDE
     Indication: RHINITIS ALLERGIC
     Dosage: 2 DF, BID
     Route: 048
  16. MEDROL [Suspect]
     Active Substance: METHYLPREDNISOLONE
     Indication: HYPERSENSITIVITY
     Route: 048
  17. XOLAIR [Suspect]
     Active Substance: OMALIZUMAB
     Route: 058
     Dates: start: 20200210
  18. CELESTAMINE [Suspect]
     Active Substance: BETAMETHASONE\DEXCHLORPHENIRAMINE MALEATE
     Indication: RHINITIS ALLERGIC
     Route: 048

REACTIONS (12)
  - Adrenal insufficiency [Recovering/Resolving]
  - Anaphylactic reaction [Recovered/Resolved]
  - Cortisol decreased [Unknown]
  - Seasonal allergy [Unknown]
  - Myalgia [Unknown]
  - Blood corticotrophin decreased [Unknown]
  - Concomitant disease aggravated [Unknown]
  - Blood sodium decreased [Unknown]
  - Gait disturbance [Unknown]
  - Injection site reaction [Recovered/Resolved]
  - Asthma [Unknown]
  - Vomiting [Unknown]

NARRATIVE: CASE EVENT DATE: 20191126
